FAERS Safety Report 5217189-7 (Version None)
Quarter: 2007Q1

REPORT INFORMATION
  Report Type: 
  Country: None (occurrence: None)
  Receive Date: 20070122
  Receipt Date: 20070122
  Transmission Date: 20070707
  Serious: Yes (Other)
  Sender: FDA-Public Use
  Company Number: None

PATIENT
  Age: 55 Year
  Sex: Male

DRUGS (2)
  1. PROCHLORPERAZINE [Suspect]
     Indication: NAUSEA
     Dosage: 20 MG PO TID PRN N/V
     Dates: start: 20001211, end: 20061214
  2. PROCHLORPERAZINE [Suspect]
     Indication: VOMITING
     Dosage: 20 MG PO TID PRN N/V
     Dates: start: 20001211, end: 20061214

REACTIONS (1)
  - TARDIVE DYSKINESIA [None]
